FAERS Safety Report 8620332-0 (Version None)
Quarter: 2012Q3

REPORT INFORMATION
  Report Type: 
  Country: None (occurrence: None)
  Receive Date: 20120824
  Receipt Date: 20120820
  Transmission Date: 20120928
  Serious: Yes (Hospitalization)
  Sender: FDA-Public Use
  Company Number: TW-BAYER-2011-042620

PATIENT
  Age: 66 Year
  Sex: Male
  Weight: 58 kg

DRUGS (23)
  1. LANSOPRAZOLE [Concomitant]
     Indication: INTESTINAL HAEMORRHAGE
  2. LOPERAMIDE [Concomitant]
     Indication: DIARRHOEA
     Dosage: 4 MG, BID
     Route: 048
     Dates: start: 20110506, end: 20110511
  3. OMNIPAQUE 140 [Concomitant]
     Indication: SCAN WITH CONTRAST
     Dosage: 35000 MG, ONCE
     Route: 042
     Dates: start: 20110322, end: 20110322
  4. OMNIPAQUE 140 [Concomitant]
     Dosage: 3500 MG, ONCE
     Route: 042
     Dates: start: 20110506, end: 20110506
  5. DICLOFENAC SODIUM [Concomitant]
     Indication: INTERVERTEBRAL DISC DISORDER
  6. GASCON [Concomitant]
     Indication: PREMEDICATION
  7. SCOPOLAMINE [Concomitant]
     Indication: PREMEDICATION
  8. NEXAVAR [Suspect]
     Dosage: 400 MG, QD
     Route: 048
     Dates: start: 20110514, end: 20110520
  9. GLIPIZIDE [Concomitant]
     Indication: TYPE 2 DIABETES MELLITUS
     Dosage: 5 MG, BID
     Route: 048
     Dates: start: 20100924
  10. NEXAVAR [Suspect]
     Dosage: 0 MG
     Dates: start: 20110406, end: 20110407
  11. NEXAVAR [Suspect]
     Dosage: 400 MG, BID
     Route: 048
     Dates: start: 20110408, end: 20110506
  12. NEXAVAR [Suspect]
     Dosage: 400 MG, QD
     Route: 048
     Dates: start: 20110507, end: 20110511
  13. CORTICOSTEROIDS, DERMATOLOGICAL PREPARATIONS [Concomitant]
     Dosage: BID
     Dates: start: 20110420
  14. LANSOPRAZOLE [Concomitant]
     Indication: GASTRIC ULCER
     Dosage: 30 MG, OD
     Route: 048
     Dates: start: 20110506
  15. XYLOCAINE [Concomitant]
     Indication: PREMEDICATION
  16. NEXAVAR [Suspect]
     Dosage: 0 MG
     Dates: start: 20110512, end: 20110513
  17. NEXAVAR [Suspect]
     Dosage: 0 MG
     Dates: start: 20110521, end: 20110525
  18. CORTICOSTEROIDS, DERMATOLOGICAL PREPARATIONS [Concomitant]
     Indication: PALMAR-PLANTAR ERYTHRODYSAESTHESIA SYNDROME
     Dosage: UNK UNK, BID
     Route: 061
     Dates: start: 20110325
  19. NEXAVAR [Suspect]
     Indication: HEPATIC NEOPLASM MALIGNANT
     Dosage: 400 MG BID
     Route: 048
     Dates: start: 20110325, end: 20110405
  20. FUROSEMIDE [Concomitant]
     Indication: OEDEMA PERIPHERAL
     Dosage: 40 MG, OD
     Route: 048
     Dates: start: 20110415
  21. LOPERAMIDE [Concomitant]
     Dosage: 4 MG, BID
     Route: 048
     Dates: start: 20110516, end: 20110521
  22. ETOFENAMATE [Concomitant]
     Indication: MUSCULOSKELETAL PAIN
     Dosage: BID
     Dates: start: 20110516
  23. ALMINOX [Concomitant]
     Indication: PROPHYLAXIS

REACTIONS (1)
  - ANAEMIA [None]
